FAERS Safety Report 24853356 (Version 2)
Quarter: 2025Q1

REPORT INFORMATION
  Report Type: Spontaneous
  Country: CA (occurrence: CA)
  Receive Date: 20250117
  Receipt Date: 20250119
  Transmission Date: 20250408
  Serious: Yes (Other)
  Sender: Kenvue
  Company Number: CA-JNTL CONSUMER HEALTH MIDDLE EAST FZ-LLC-20250104536

PATIENT

DRUGS (4)
  1. TYLENOL [Interacting]
     Active Substance: ACETAMINOPHEN
     Indication: Product used for unknown indication
     Route: 065
  2. MORPHINE SULFATE [Interacting]
     Active Substance: MORPHINE SULFATE
     Indication: Product used for unknown indication
     Route: 065
  3. TORADOL [Interacting]
     Active Substance: KETOROLAC TROMETHAMINE
     Indication: Product used for unknown indication
     Route: 065
  4. RINVOQ [Interacting]
     Active Substance: UPADACITINIB
     Indication: Ankylosing spondylitis
     Dosage: 15.0 MILLIGRAM, ONCE A DAY
     Route: 048

REACTIONS (5)
  - Pain [Unknown]
  - Gastrointestinal haemorrhage [Unknown]
  - Drug interaction [Unknown]
  - Inflammation [Unknown]
  - Muscle spasms [Unknown]
